FAERS Safety Report 8009906-8 (Version None)
Quarter: 2011Q4

REPORT INFORMATION
  Report Type: 
  Country: None (occurrence: None)
  Receive Date: 20111228
  Receipt Date: 20111214
  Transmission Date: 20120403
  Serious: Yes (Other)
  Sender: FDA-Public Use
  Company Number: PHHY2011FR109653

PATIENT
  Age: 44 Year
  Sex: Female

DRUGS (2)
  1. ACETAMINOPHEN [Concomitant]
     Dosage: AS NEEDED
  2. RASILEZ HCT [Suspect]
     Indication: HYPERTENSION
     Dosage: 1 DF, DAILY
     Dates: start: 20110701

REACTIONS (5)
  - TRANSIENT ISCHAEMIC ATTACK [None]
  - MALAISE [None]
  - MEMORY IMPAIRMENT [None]
  - AMNESIA [None]
  - STRESS [None]
